FAERS Safety Report 14122664 (Version 1)
Quarter: 2017Q4

REPORT INFORMATION
  Report Type: Spontaneous
  Country: FR (occurrence: FR)
  Receive Date: 20171024
  Receipt Date: 20171024
  Transmission Date: 20180321
  Serious: Yes (Hospitalization)
  Sender: FDA-Public Use
  Company Number: FR-ASTRAZENECA-2017SF07947

PATIENT
  Age: 23087 Day
  Sex: Female

DRUGS (14)
  1. PANTOPRAZOLE [Concomitant]
     Active Substance: PANTOPRAZOLE
  2. ESCITALOPRAM [Concomitant]
     Active Substance: ESCITALOPRAM OXALATE
  3. SKENAN [Concomitant]
     Active Substance: MORPHINE SULFATE
  4. FOLIC ACID. [Concomitant]
     Active Substance: FOLIC ACID
  5. DAFALGAN [Concomitant]
     Active Substance: ACETAMINOPHEN
  6. MOVICOL [Concomitant]
     Active Substance: POLYETHYLENE GLYCOL 3350\POTASSIUM CHLORIDE\SODIUM BICARBONATE\SODIUM CHLORIDE
  7. AMLOR [Concomitant]
     Active Substance: AMLODIPINE BESYLATE
  8. LEVOTHYROX [Concomitant]
     Active Substance: LEVOTHYROXINE
  9. ATACAND [Concomitant]
     Active Substance: CANDESARTAN CILEXETIL
     Route: 048
     Dates: end: 20170908
  10. CORTANCYL [Concomitant]
     Active Substance: PREDNISONE
  11. METOJECT [Concomitant]
     Active Substance: METHOTREXATE SODIUM
  12. KARDEGIC [Concomitant]
     Active Substance: ASPIRIN DL-LYSINE
  13. INSULIN [Concomitant]
     Active Substance: INSULIN NOS
  14. OLAPARIB. [Suspect]
     Active Substance: OLAPARIB
     Indication: OVARIAN EPITHELIAL CANCER
     Route: 048
     Dates: start: 20170828, end: 20170908

REACTIONS (6)
  - Acute kidney injury [Recovering/Resolving]
  - Off label use [Recovered/Resolved]
  - Pain [Recovering/Resolving]
  - Decreased appetite [Recovering/Resolving]
  - Asthenia [Recovering/Resolving]
  - Nausea [Recovering/Resolving]

NARRATIVE: CASE EVENT DATE: 20170828
